FAERS Safety Report 6812642-4 (Version None)
Quarter: 2010Q3

REPORT INFORMATION
  Report Type: 
  Country: None (occurrence: None)
  Receive Date: 20100701
  Receipt Date: 20100623
  Transmission Date: 20110219
  Serious: Yes (Other)
  Sender: FDA-Public Use
  Company Number: JP-PFIZER INC-2010075973

PATIENT
  Age: 72 Year
  Sex: Female

DRUGS (8)
  1. CADUET [Suspect]
     Indication: HYPERTENSION
     Dosage: 1 DF, 1X/DAY
     Route: 048
     Dates: start: 20100613, end: 20100615
  2. CADUET [Suspect]
     Indication: HYPERLIPIDAEMIA
  3. TENORMIN [Concomitant]
     Indication: HYPERTENSION
     Dosage: 1 DF, 1X/DAY
     Route: 048
     Dates: start: 20030901
  4. GLORIAMIN [Concomitant]
     Indication: GASTRIC DISORDER
     Dosage: 1 G, 1X/DAY
     Route: 048
     Dates: start: 20030901
  5. PALGIN [Concomitant]
     Indication: INSOMNIA
     Dosage: 1 DF, 1X/DAY
     Route: 048
     Dates: start: 20030901
  6. PALGIN [Concomitant]
     Indication: ANXIETY
  7. TRIAZOLAM [Concomitant]
     Indication: INSOMNIA
     Dosage: 1 DF, 1X/DAY
     Route: 048
     Dates: start: 20030901
  8. SENNOSIDES [Concomitant]
     Indication: CONSTIPATION
     Dosage: 2 DF, 1X/DAY
     Route: 048
     Dates: start: 20030901

REACTIONS (5)
  - BLOOD PRESSURE INCREASED [None]
  - FEELING ABNORMAL [None]
  - FLUSHING [None]
  - MALAISE [None]
  - TACHYCARDIA [None]
